FAERS Safety Report 24064625 (Version 4)
Quarter: 2024Q3

REPORT INFORMATION
  Report Type: Report from Study
  Country: US (occurrence: US)
  Receive Date: 20240709
  Receipt Date: 20240916
  Transmission Date: 20241017
  Serious: Yes (Hospitalization)
  Sender: ROCHE
  Company Number: US-ROCHE-10000017076

PATIENT
  Age: 7 Year
  Sex: Female

DRUGS (2)
  1. EVRYSDI [Suspect]
     Active Substance: RISDIPLAM
     Indication: Spinal muscular atrophy
     Dosage: STRENGTH: 0.75 MG / 1 ML
     Route: 048
     Dates: start: 20201112
  2. EVRYSDI [Suspect]
     Active Substance: RISDIPLAM
     Route: 048
     Dates: end: 20210916

REACTIONS (1)
  - COVID-19 [Recovering/Resolving]

NARRATIVE: CASE EVENT DATE: 20240620
